FAERS Safety Report 20207676 (Version 2)
Quarter: 2021Q4

REPORT INFORMATION
  Report Type: Spontaneous
  Country: AR (occurrence: AR)
  Receive Date: 20211220
  Receipt Date: 20211221
  Transmission Date: 20220303
  Serious: Yes (Life-Threatening, Other)
  Sender: FDA-Public Use
  Company Number: AR-PFIZER INC-202101787673

PATIENT
  Age: 67 Year
  Sex: Female

DRUGS (1)
  1. XELJANZ XR [Suspect]
     Active Substance: TOFACITINIB CITRATE

REACTIONS (8)
  - Fall [Unknown]
  - Head injury [Unknown]
  - Diabetes mellitus [Unknown]
  - Balance disorder [Unknown]
  - Depression [Unknown]
  - Fear of falling [Unknown]
  - Arthropathy [Unknown]
  - Asthenia [Unknown]
